FAERS Safety Report 5006739-1 (Version None)
Quarter: 2006Q2

REPORT INFORMATION
  Report Type: 
  Country: None (occurrence: None)
  Receive Date: 20060516
  Receipt Date: 20060504
  Transmission Date: 20061013
  Serious: Yes (Hospitalization)
  Sender: FDA-Public Use
  Company Number: MEDI-0004557

PATIENT
  Age: 4 Month
  Sex: 0
  Weight: 5.07 kg

DRUGS (4)
  1. SYNAGIS [Suspect]
     Indication: ANTIVIRAL PROPHYLAXIS
     Dosage: 50 MG, 1 IN 30 D, INTRAMUSCULAR; SEE IMAGE
     Route: 030
     Dates: start: 20051115, end: 20051115
  2. SYNAGIS [Suspect]
     Indication: ANTIVIRAL PROPHYLAXIS
     Dosage: 50 MG, 1 IN 30 D, INTRAMUSCULAR; SEE IMAGE
     Route: 030
     Dates: start: 20060311, end: 20060311
  3. SYNAGIS [Suspect]
     Indication: ANTIVIRAL PROPHYLAXIS
     Dosage: 50 MG, 1 IN 30 D, INTRAMUSCULAR; SEE IMAGE
     Route: 030
     Dates: start: 20060106
  4. SYNAGIS [Suspect]
     Indication: ANTIVIRAL PROPHYLAXIS
     Dosage: 50 MG, 1 IN 30 D, INTRAMUSCULAR; SEE IMAGE
     Route: 030
     Dates: start: 20060208

REACTIONS (2)
  - BRONCHIOLITIS [None]
  - VARICELLA [None]
